FAERS Safety Report 9924730 (Version 4)
Quarter: 2014Q1

REPORT INFORMATION
  Report Type: Report from Study
  Country: CA (occurrence: CA)
  Receive Date: 20140226
  Receipt Date: 20140318
  Transmission Date: 20141002
  Serious: Yes (Other)
  Sender: FDA-Public Use
  Company Number: CA-ROCHE-1285745

PATIENT
  Age: 51 Year
  Sex: Male

DRUGS (9)
  1. RITUXAN [Suspect]
     Indication: RHEUMATOID ARTHRITIS
     Route: 042
     Dates: start: 20131003
  2. RITUXAN [Suspect]
     Route: 042
     Dates: start: 20131018
  3. ACETAMINOPHEN [Concomitant]
     Route: 048
     Dates: start: 20131003
  4. METHYLPREDNISOLONE [Concomitant]
     Route: 042
     Dates: start: 20131003
  5. CELEBREX [Concomitant]
  6. PREDNISONE [Concomitant]
  7. METHOTREXATE [Concomitant]
  8. FOLIC ACID [Concomitant]
  9. DIPHENHYDRAMINE HCL [Concomitant]
     Route: 048
     Dates: start: 20131003

REACTIONS (2)
  - Type 2 diabetes mellitus [Not Recovered/Not Resolved]
  - Dysphonia [Recovered/Resolved]
